FAERS Safety Report 6983690-9 (Version None)
Quarter: 2010Q3

REPORT INFORMATION
  Report Type: 
  Country: None (occurrence: None)
  Receive Date: 20100914
  Receipt Date: 20050225
  Transmission Date: 20110219
  Serious: Yes (Death)
  Sender: FDA-Public Use
  Company Number: US-WYE-H07075408

PATIENT
  Age: 34 Year
  Sex: Male
  Weight: 68 kg

DRUGS (5)
  1. ADVIL LIQUI-GELS [Suspect]
     Indication: PRODUCT USED FOR UNKNOWN INDICATION
     Dosage: UNKNOWN
     Route: 048
  2. PSEUDOEPHEDRINE HYDROCHLORIDE [Suspect]
     Indication: PRODUCT USED FOR UNKNOWN INDICATION
     Dosage: UNKNOWN
     Route: 048
  3. DIAZEPAM [Suspect]
     Indication: PRODUCT USED FOR UNKNOWN INDICATION
     Dosage: UNKNOWN
     Route: 048
  4. OXYCONTIN [Suspect]
     Indication: BACK PAIN
     Dosage: UNKNOWN
     Route: 048
  5. SOMINEX II [Suspect]
     Indication: PRODUCT USED FOR UNKNOWN INDICATION
     Dosage: UNKNOWN
     Route: 048

REACTIONS (10)
  - COLONIC POLYP [None]
  - DEPRESSED LEVEL OF CONSCIOUSNESS [None]
  - DRUG TOXICITY [None]
  - HEPATIC CONGESTION [None]
  - HEPATIC STEATOSIS [None]
  - OVERDOSE [None]
  - PERICARDITIS [None]
  - PULMONARY CONGESTION [None]
  - SPLEEN CONGESTION [None]
  - VENTRICULAR HYPERTROPHY [None]
